APPROVED DRUG PRODUCT: PEMETREXED DISODIUM
Active Ingredient: PEMETREXED DISODIUM
Strength: EQ 1GM BASE/VIAL
Dosage Form/Route: POWDER;INTRAVENOUS
Application: A215479 | Product #004 | TE Code: AP
Applicant: MEITHEAL PHARMACEUTICALS INC
Approved: Dec 13, 2022 | RLD: No | RS: No | Type: RX